FAERS Safety Report 15110632 (Version 1)
Quarter: 2018Q2

REPORT INFORMATION
  Report Type: Spontaneous
  Country: US (occurrence: US)
  Receive Date: 20180612
  Receipt Date: 20180612
  Transmission Date: 20180711
  Serious: Yes (Hospitalization)
  Sender: FDA-Public Use
  Company Number: None

PATIENT
  Age: 61 Year
  Sex: Female

DRUGS (1)
  1. ZEJULA [Suspect]
     Active Substance: NIRAPARIB
     Indication: OVARIAN CANCER
     Route: 048
     Dates: start: 20170501

REACTIONS (6)
  - Fatigue [None]
  - Dry mouth [None]
  - Platelet count decreased [None]
  - Nausea [None]
  - Hair growth abnormal [None]
  - Neuropathy peripheral [None]
